FAERS Safety Report 20795413 (Version 1)
Quarter: 2022Q2

REPORT INFORMATION
  Report Type: Spontaneous
  Country: US (occurrence: None)
  Receive Date: 20220505
  Receipt Date: 20220505
  Transmission Date: 20220721
  Serious: Yes (Life-Threatening, Disabling, Other)
  Sender: FDA-Public Use
  Company Number: None

PATIENT
  Age: 78 Year
  Sex: Female
  Weight: 74.25 kg

DRUGS (14)
  1. SPIRONOLACTONE [Suspect]
     Active Substance: SPIRONOLACTONE
     Indication: Hypertension
     Dosage: OTHER QUANTITY : 1 TABLET(S);?FREQUENCY : DAILY;?
     Route: 048
     Dates: start: 20200228, end: 20201219
  2. VITAMIN A [Concomitant]
     Active Substance: VITAMIN A
  3. VITAMIN B [Concomitant]
     Active Substance: VITAMIN B
  4. VITAMIN C [Concomitant]
     Active Substance: ASCORBIC ACID
  5. VITAMIN D3 [Concomitant]
     Active Substance: CHOLECALCIFEROL
  6. Vtamin E [Concomitant]
  7. Selenium magnesium [Concomitant]
  8. ZINC [Concomitant]
     Active Substance: ZINC
  9. LUTEIN [Concomitant]
     Active Substance: LUTEIN
  10. POTASSIUM [Concomitant]
  11. biblerry [Concomitant]
  12. SCHISANDRA [Concomitant]
  13. Black currant seed oil [Concomitant]
  14. TAURINE [Concomitant]
     Active Substance: TAURINE

REACTIONS (5)
  - Breast cancer [None]
  - Breast enlargement [None]
  - Breast discharge [None]
  - Lymphadenopathy [None]
  - Breast pain [None]

NARRATIVE: CASE EVENT DATE: 20200228
